FAERS Safety Report 12266395 (Version 1)
Quarter: 2016Q2

REPORT INFORMATION
  Report Type: Spontaneous
  Country: IN (occurrence: IN)
  Receive Date: 20160414
  Receipt Date: 20160414
  Transmission Date: 20160815
  Serious: Yes (Death)
  Sender: FDA-Public Use
  Company Number: IN-009507513-1604IND007210

PATIENT
  Age: 51 Year
  Sex: Female
  Weight: 48.5 kg

DRUGS (2)
  1. JANUMET [Suspect]
     Active Substance: METFORMIN HYDROCHLORIDE\SITAGLIPTIN PHOSPHATE
     Indication: DIABETES MELLITUS
     Dosage: 1 DF, QD
     Route: 048
  2. INSULIN [Concomitant]
     Active Substance: INSULIN NOS

REACTIONS (2)
  - Death [Fatal]
  - Blood glucose decreased [Unknown]

NARRATIVE: CASE EVENT DATE: 20151213
